FAERS Safety Report 10184108 (Version 1)
Quarter: 2014Q2

REPORT INFORMATION
  Report Type: Spontaneous
  Country: US (occurrence: US)
  Receive Date: 20140520
  Receipt Date: 20140520
  Transmission Date: 20141212
  Serious: No
  Sender: FDA-Public Use
  Company Number: US-ASTRAZENECA-2014SE18098

PATIENT
  Age: 52 Year
  Sex: Female
  Weight: 73.5 kg

DRUGS (8)
  1. ENTOCORT EC [Suspect]
     Indication: COLITIS MICROSCOPIC
     Route: 048
     Dates: start: 20140305, end: 20140307
  2. POTASSIUM [Concomitant]
     Indication: SUPPLEMENTATION THERAPY
  3. LUNESTA [Concomitant]
     Indication: SLEEP DISORDER
  4. ZOLOFT [Concomitant]
     Indication: DEPRESSION
  5. TOPAMAX [Concomitant]
     Indication: PAIN
  6. XANAX [Concomitant]
     Indication: ANXIETY
  7. PRIMPRO [Concomitant]
     Indication: BLOOD OESTROGEN
  8. TYKENOL WITH HYDROCODONE [Concomitant]
     Indication: INJECTION SITE PAIN

REACTIONS (19)
  - Myalgia [Unknown]
  - Nausea [Unknown]
  - Headache [Unknown]
  - Asthenia [Unknown]
  - Dizziness [Unknown]
  - Abdominal pain [Unknown]
  - Back pain [Unknown]
  - Arthralgia [Unknown]
  - Vomiting [Unknown]
  - Abdominal distension [Unknown]
  - Depression [Unknown]
  - Irritability [Unknown]
  - Anxiety [Unknown]
  - Agitation [Unknown]
  - Dyspepsia [Unknown]
  - Mood swings [Unknown]
  - Insomnia [Unknown]
  - Dyspepsia [Unknown]
  - Off label use [Unknown]
